FAERS Safety Report 4969184-0 (Version None)
Quarter: 2006Q2

REPORT INFORMATION
  Report Type: 
  Country: None (occurrence: None)
  Receive Date: 20060411
  Receipt Date: 20051227
  Transmission Date: 20061013
  Serious: Yes (Death)
  Sender: FDA-Public Use
  Company Number: US-BRISTOL-MYERS SQUIBB COMPANY-13230891

PATIENT
  Age: 57 Year
  Sex: Male

DRUGS (11)
  1. TAXOL [Suspect]
     Indication: HEPATIC NEOPLASM MALIGNANT
     Route: 042
     Dates: start: 20051221, end: 20051221
  2. PARAPLATIN [Suspect]
     Indication: HEPATIC NEOPLASM MALIGNANT
     Route: 042
     Dates: start: 20051221, end: 20051221
  3. NEULASTA [Concomitant]
     Route: 058
  4. BENADRYL [Concomitant]
     Route: 042
  5. ALOXI [Concomitant]
     Route: 042
  6. ZANTAC [Concomitant]
     Route: 042
  7. HEXADROL [Concomitant]
     Route: 042
  8. INSULIN [Concomitant]
  9. SPIRONOLACTONE [Concomitant]
  10. PRILOSEC [Concomitant]
  11. LISINOPRIL [Concomitant]

REACTIONS (1)
  - MALIGNANT NEOPLASM PROGRESSION [None]
